FAERS Safety Report 7637708-0 (Version None)
Quarter: 2011Q3

REPORT INFORMATION
  Report Type: 
  Country: None (occurrence: None)
  Receive Date: 20110726
  Receipt Date: 20110613
  Transmission Date: 20111222
  Serious: Yes (Other)
  Sender: FDA-Public Use
  Company Number: PHHY2011JP53830

PATIENT
  Sex: Male
  Weight: 56 kg

DRUGS (6)
  1. DIOVAN [Concomitant]
     Dosage: 80 MG, UNK
     Route: 048
  2. AFINITOR [Suspect]
     Indication: METASTATIC RENAL CELL CARCINOMA
     Dosage: 10 MG, DAILY
     Route: 048
     Dates: start: 20100817, end: 20110326
  3. SORAFENIB TOSILATE [Concomitant]
     Indication: METASTATIC RENAL CELL CARCINOMA
     Dosage: 50 MG, UNK
     Route: 048
     Dates: start: 20100622, end: 20100710
  4. ZOMETA [Suspect]
     Indication: METASTASES TO BONE
     Route: 041
  5. AFINITOR [Suspect]
     Dosage: 5 MG, DAILY
     Dates: start: 20110430
  6. TAMSULOSIN HCL [Concomitant]
     Indication: METASTASES TO BONE
     Dosage: 0.2 MG, UNK
     Route: 048
     Dates: start: 20100601

REACTIONS (2)
  - OSTEONECROSIS OF JAW [None]
  - HAEMOGLOBIN DECREASED [None]
